FAERS Safety Report 18402922 (Version 2)
Quarter: 2021Q1

REPORT INFORMATION
  Report Type: Report from Study
  Country: US (occurrence: US)
  Receive Date: 20201019
  Receipt Date: 20210112
  Transmission Date: 20210419
  Serious: Yes (Other)
  Sender: FDA-Public Use
  Company Number: NVSC2020US276933

PATIENT
  Sex: Female

DRUGS (2)
  1. ENTRESTO [Suspect]
     Active Substance: SACUBITRIL\VALSARTAN
     Indication: CARDIAC FAILURE CONGESTIVE
     Dosage: 200 MG (97/103 MG)
     Route: 048
  2. ENTRESTO [Suspect]
     Active Substance: SACUBITRIL\VALSARTAN
     Dosage: 100 MG, BID,(49/51)MG
     Route: 048

REACTIONS (14)
  - Nausea [Unknown]
  - Contusion [Unknown]
  - Amnesia [Unknown]
  - Cough [Unknown]
  - Ageusia [Unknown]
  - Mental disorder [Unknown]
  - Back disorder [Unknown]
  - Headache [Unknown]
  - Neuropathy peripheral [Unknown]
  - Arthritis [Unknown]
  - Anosmia [Unknown]
  - Chest pain [Unknown]
  - COVID-19 [Unknown]
  - Cardiac disorder [Unknown]
